FAERS Safety Report 7783350-0 (Version None)
Quarter: 2011Q3

REPORT INFORMATION
  Report Type: 
  Country: None (occurrence: None)
  Receive Date: 20110926
  Receipt Date: 20110909
  Transmission Date: 20111222
  Serious: Yes (Other)
  Sender: FDA-Public Use
  Company Number: GB-ACCORD-010650

PATIENT
  Age: 76 Year
  Sex: Female
  Weight: 67 kg

DRUGS (18)
  1. SLOZEM(SLOZEM) [Concomitant]
  2. HYPROMELLOSE(HYPROMELLOSE) [Concomitant]
  3. SIMVASTATIN [Suspect]
     Indication: PRODUCT USED FOR UNKNOWN INDICATION
     Dates: start: 20110901
  4. GABAPENTIN [Concomitant]
  5. CALCICHEW D3(CALCICHEW D3) [Concomitant]
  6. HYDROXOCOBALAMIN [Concomitant]
  7. MEPTAZINOL(MEPTAZINOL) [Concomitant]
  8. LORATADINE [Concomitant]
  9. CLOPIDOGREL [Concomitant]
  10. LOFEPRAMINE(LOFEPRAMINE) [Concomitant]
  11. OMEPRAZOLE [Concomitant]
  12. RAMIPRIL [Concomitant]
  13. ZOPICLONE(ZOPICLONE) [Concomitant]
  14. CETOSTEARYL ALCOHOL(CETOSTEARYL ALCOHOL) [Concomitant]
  15. BECLOMETHASONE DIPROPIONATE [Concomitant]
  16. DOCUSATE SODIUM (DOCUSATE SODIUM) [Concomitant]
  17. ACETAMINOPHEN [Concomitant]
  18. TRIMETHOPRIM(RRIMETHOPRIM) [Concomitant]

REACTIONS (1)
  - CONTUSION [None]
